FAERS Safety Report 13668474 (Version 1)
Quarter: 2017Q2

REPORT INFORMATION
  Report Type: Spontaneous
  Country: US (occurrence: US)
  Receive Date: 20170619
  Receipt Date: 20170619
  Transmission Date: 20170830
  Serious: No
  Sender: FDA-Public Use
  Company Number: None

PATIENT
  Age: 87 Year
  Sex: Male

DRUGS (1)
  1. ZYTIGA [Suspect]
     Active Substance: ABIRATERONE ACETATE
     Indication: PROSTATE CANCER
     Dosage: 250MG TAKE 4 TABLETS BY MOUTH ONCE A DAILY
     Route: 048
     Dates: start: 20170512, end: 20170605

REACTIONS (1)
  - Asthenia [None]

NARRATIVE: CASE EVENT DATE: 20170619
